FAERS Safety Report 9719970 (Version 3)
Quarter: 2013Q4

REPORT INFORMATION
  Report Type: Spontaneous
  Country: DE (occurrence: DE)
  Receive Date: 20131128
  Receipt Date: 20131216
  Transmission Date: 20140711
  Serious: Yes (Other)
  Sender: FDA-Public Use
  Company Number: DE-JNJFOC-20131115578

PATIENT
  Age: 86 Year
  Sex: Male
  Weight: 65 kg

DRUGS (3)
  1. XARELTO [Suspect]
     Indication: ATRIAL FIBRILLATION
     Route: 048
     Dates: start: 20121204, end: 20131023
  2. XARELTO [Suspect]
     Indication: CEREBROVASCULAR ACCIDENT PROPHYLAXIS
     Route: 048
     Dates: start: 20121204, end: 20131023
  3. CANDESARTAN [Concomitant]
     Indication: HYPERTENSION
     Route: 065

REACTIONS (5)
  - Retinal haemorrhage [Not Recovered/Not Resolved]
  - Retinal neovascularisation [Not Recovered/Not Resolved]
  - Visual field defect [Unknown]
  - Retinal oedema [Unknown]
  - Visual impairment [Unknown]
